FAERS Safety Report 17611484 (Version 1)
Quarter: 2020Q2

REPORT INFORMATION
  Report Type: Spontaneous
  Country: US (occurrence: US)
  Receive Date: 20200401
  Receipt Date: 20200401
  Transmission Date: 20200713
  Serious: No
  Sender: FDA-Public Use
  Company Number: US-BAUSCH-BL-2020-007854

PATIENT
  Age: 75 Year
  Sex: Female
  Weight: 68.1 kg

DRUGS (1)
  1. LUMIFY [Suspect]
     Active Substance: BRIMONIDINE TARTRATE
     Indication: OCULAR HYPERAEMIA
     Dosage: STARTED ON SOMETIME DURING THE WEEK OF 09/FEB/2020 (ONE DROP IN EACH EYE AS NEEDED)
     Route: 047
     Dates: start: 202002, end: 202002

REACTIONS (4)
  - Eye swelling [Recovered/Resolved]
  - Inappropriate schedule of product administration [Unknown]
  - Ocular discomfort [Recovered/Resolved]
  - Eye irritation [Recovered/Resolved]

NARRATIVE: CASE EVENT DATE: 202002
